FAERS Safety Report 19751915 (Version 3)
Quarter: 2021Q3

REPORT INFORMATION
  Report Type: Report from Study
  Country: None (occurrence: US)
  Receive Date: 20210827
  Receipt Date: 20210831
  Transmission Date: 20211014
  Serious: Yes (Life-Threatening, Hospitalization, Other)
  Sender: FDA-Public Use
  Company Number: US-ABBVIE-21K-163-4051253-00

PATIENT
  Age: 69 Year
  Sex: Male
  Weight: 59.02 kg

DRUGS (5)
  1. MERCAPTOPURINE. [Concomitant]
     Active Substance: MERCAPTOPURINE
     Indication: PRODUCT USED FOR UNKNOWN INDICATION
  2. PFIZER?BIONTECH COVID?19 VACCINE [Concomitant]
     Active Substance: TOZINAMERAN
     Indication: COVID-19 IMMUNISATION
     Route: 030
     Dates: start: 20210127, end: 20210127
  3. PFIZER?BIONTECH COVID?19 VACCINE [Concomitant]
     Active Substance: TOZINAMERAN
     Route: 030
     Dates: start: 20210304, end: 20210304
  4. HUMIRA [Suspect]
     Active Substance: ADALIMUMAB
     Indication: CROHN^S DISEASE
     Route: 058
     Dates: start: 2012
  5. RUBRACA [Suspect]
     Active Substance: RUCAPARIB CAMSYLATE
     Indication: CHEMOTHERAPY
     Route: 065

REACTIONS (10)
  - Rectourethral fistula [Recovered/Resolved]
  - Medical device site infection [Recovered/Resolved]
  - Weight decreased [Not Recovered/Not Resolved]
  - Prostate cancer metastatic [Unknown]
  - Asthenia [Unknown]
  - Vesical fistula [Recovered/Resolved]
  - Fatigue [Unknown]
  - Bladder cancer [Unknown]
  - Urinary incontinence [Recovered/Resolved]
  - Colo-urethral fistula [Recovered/Resolved]

NARRATIVE: CASE EVENT DATE: 2016
